FAERS Safety Report 9820455 (Version 2)
Quarter: 2014Q1

REPORT INFORMATION
  Report Type: Spontaneous
  Country: PL (occurrence: None)
  Receive Date: 20140114
  Receipt Date: 20140205
  Transmission Date: 20141002
  Serious: Yes (Hospitalization)
  Sender: FDA-Public Use
  Company Number: 2013RR-77237

PATIENT
  Age: 63 Year
  Sex: Female

DRUGS (4)
  1. CEFUROXIME [Suspect]
     Indication: GENERAL PHYSICAL HEALTH DETERIORATION
     Route: 048
  2. ALTACET [Suspect]
     Indication: OEDEMA PERIPHERAL
     Route: 061
  3. CLOBETASOL PROPIONATE [Suspect]
     Indication: PSORIASIS
     Route: 061
  4. HYDROCORTISONE [Suspect]
     Indication: PSORIASIS
     Route: 061

REACTIONS (5)
  - Psoriasis [None]
  - Local swelling [None]
  - Pemphigoid [None]
  - Local swelling [None]
  - Oedema peripheral [None]
